FAERS Safety Report 6752812-7 (Version None)
Quarter: 2010Q2

REPORT INFORMATION
  Report Type: 
  Country: None (occurrence: None)
  Receive Date: 20100603
  Receipt Date: 20100521
  Transmission Date: 20101027
  Serious: Yes (Death)
  Sender: FDA-Public Use
  Company Number: US-ASTRAZENECA-2008UW18540

PATIENT
  Sex: Female

DRUGS (4)
  1. SEROQUEL [Suspect]
     Dosage: 50 MG TO 300 MG.
     Route: 048
     Dates: start: 20020306
  2. ZOLOFT [Concomitant]
     Route: 048
     Dates: start: 20020306
  3. DEPAKOTE ER [Concomitant]
     Route: 048
     Dates: start: 20020306
  4. LIPITOR [Concomitant]
     Route: 048
     Dates: start: 20020101

REACTIONS (2)
  - DEATH [None]
  - ILL-DEFINED DISORDER [None]
